FAERS Safety Report 7402193-0 (Version None)
Quarter: 2011Q2

REPORT INFORMATION
  Report Type: 
  Country: None (occurrence: None)
  Receive Date: 20110401
  Receipt Date: 20110323
  Transmission Date: 20111010
  Serious: Yes (Life-Threatening, Hospitalization)
  Sender: FDA-Public Use
  Company Number: TCI2011A02062

PATIENT
  Age: 56 Year
  Sex: Male

DRUGS (8)
  1. BASEN (VOGLIBOSE) [Concomitant]
  2. LIVALO (ITAVASTATIN CALCIUM) [Concomitant]
  3. ACTOS [Suspect]
     Indication: TYPE 2 DIABETES MELLITUS
     Dosage: 15 MG (15 MG,1 D) PER ORAL
     Route: 048
     Dates: start: 20080104, end: 20101205
  4. ANGIOTENSIN II ANTAGONISTS [Concomitant]
  5. ALDACTONE [Concomitant]
  6. HYPADIL (NIPRADOLOL) [Concomitant]
  7. AMARYL [Concomitant]
  8. ASPIRIN [Concomitant]

REACTIONS (5)
  - CARDIAC FAILURE [None]
  - LOSS OF CONSCIOUSNESS [None]
  - ACUTE MYOCARDIAL INFARCTION [None]
  - BACK PAIN [None]
  - CORONARY ARTERY STENOSIS [None]
